FAERS Safety Report 11501316 (Version 1)
Quarter: 2015Q3

REPORT INFORMATION
  Report Type: Spontaneous
  Country: US (occurrence: None)
  Receive Date: 20150911
  Receipt Date: 20150911
  Transmission Date: 20151125
  Serious: Yes (Disabling, Other)
  Sender: FDA-Public Use
  Company Number: None

PATIENT
  Age: 42 Year
  Sex: Female
  Weight: 72.58 kg

DRUGS (1)
  1. LATUDA [Suspect]
     Active Substance: LURASIDONE HYDROCHLORIDE
     Indication: BIPOLAR I DISORDER
     Route: 048
     Dates: start: 20140523, end: 20150625

REACTIONS (11)
  - Dystonia [None]
  - Impaired driving ability [None]
  - Arthropathy [None]
  - Akathisia [None]
  - Fall [None]
  - Torticollis [None]
  - Blepharospasm [None]
  - Diaphragmatic disorder [None]
  - Tardive dyskinesia [None]
  - Complex regional pain syndrome [None]
  - Dyspnoea [None]

NARRATIVE: CASE EVENT DATE: 20140625
